FAERS Safety Report 17960370 (Version 1)
Quarter: 2020Q2

REPORT INFORMATION
  Report Type: Report from Study
  Country: CO (occurrence: CO)
  Receive Date: 20200630
  Receipt Date: 20200630
  Transmission Date: 20200714
  Serious: Yes (Other)
  Sender: FDA-Public Use
  Company Number: CO-UCBSA-2020025169

PATIENT
  Age: 49 Year
  Sex: Male

DRUGS (3)
  1. MELOXICAM. [Concomitant]
     Active Substance: MELOXICAM
     Indication: ANKYLOSING SPONDYLITIS
  2. KETOPROFENO [Concomitant]
     Indication: ANKYLOSING SPONDYLITIS
  3. CERTOLIZUMAB PEGOL [Suspect]
     Active Substance: CERTOLIZUMAB PEGOL
     Indication: ANKYLOSING SPONDYLITIS
     Dosage: 400 MILLIGRAM, EV 4 WEEKS
     Route: 058
     Dates: start: 20200324, end: 20200425

REACTIONS (5)
  - Anosmia [Recovered/Resolved]
  - Nasal congestion [Recovered/Resolved]
  - SARS-CoV-2 test positive [Unknown]
  - Ageusia [Recovered/Resolved]
  - Cough [Recovered/Resolved]

NARRATIVE: CASE EVENT DATE: 20200524
